FAERS Safety Report 12901251 (Version 4)
Quarter: 2017Q2

REPORT INFORMATION
  Report Type: Spontaneous
  Country: SE (occurrence: SE)
  Receive Date: 20161101
  Receipt Date: 20170523
  Transmission Date: 20170830
  Serious: Yes (Other)
  Sender: FDA-Public Use
  Company Number: SE-ABBVIE-16K-150-1762793-00

PATIENT
  Sex: Male

DRUGS (8)
  1. HUMIRA [Suspect]
     Active Substance: ADALIMUMAB
     Indication: PSORIASIS
     Route: 058
     Dates: start: 20080929, end: 201202
  2. METHOTREXATE. [Suspect]
     Active Substance: METHOTREXATE
     Route: 065
     Dates: start: 200902, end: 201201
  3. METHOTREXATE. [Suspect]
     Active Substance: METHOTREXATE
     Indication: PSORIASIS
     Route: 065
     Dates: start: 20060406, end: 200709
  4. METHOTREXATE. [Suspect]
     Active Substance: METHOTREXATE
     Route: 065
     Dates: start: 20080929, end: 200902
  5. METHOTREXATE. [Suspect]
     Active Substance: METHOTREXATE
     Route: 065
     Dates: start: 201201, end: 201203
  6. HUMIRA [Suspect]
     Active Substance: ADALIMUMAB
     Indication: PSORIATIC ARTHROPATHY
     Route: 058
     Dates: start: 20160224, end: 20161015
  7. METHOTREXATE. [Suspect]
     Active Substance: METHOTREXATE
     Route: 065
     Dates: start: 200709, end: 200809
  8. FOLIC ACID. [Concomitant]
     Active Substance: FOLIC ACID
     Indication: PRODUCT USED FOR UNKNOWN INDICATION
     Dosage: THE DAY AFTER METHOTREXATE DOSE

REACTIONS (12)
  - Fatigue [Not Recovered/Not Resolved]
  - Nausea [Unknown]
  - Heart valve incompetence [Unknown]
  - Vital capacity decreased [Not Recovered/Not Resolved]
  - Wheezing [Unknown]
  - Hypertension [Unknown]
  - Transaminases increased [Unknown]
  - Syncope [Not Recovered/Not Resolved]
  - Cystatin C increased [Unknown]
  - Pulmonary fibrosis [Unknown]
  - Hypothyroidism [Unknown]
  - Arthralgia [Unknown]

NARRATIVE: CASE EVENT DATE: 2012
